FAERS Safety Report 18633456 (Version 1)
Quarter: 2020Q4

REPORT INFORMATION
  Report Type: Spontaneous
  Country: US (occurrence: US)
  Receive Date: 20201218
  Receipt Date: 20201218
  Transmission Date: 20210114
  Serious: Yes (Hospitalization)
  Sender: FDA-Public Use
  Company Number: None

PATIENT
  Age: 83 Year
  Sex: Male
  Weight: 73.35 kg

DRUGS (3)
  1. BAMLANIVIMAB. [Suspect]
     Active Substance: BAMLANIVIMAB
     Indication: SARS-COV-2 TEST
     Dosage: ?          OTHER FREQUENCY:ONCE;?
     Route: 041
     Dates: start: 20201218, end: 20201218
  2. DIPHENHYDRAMINE 25 MG CAP [Concomitant]
     Dates: start: 20201217, end: 20201218
  3. SODIUM CHLORIDE 0.9% [Concomitant]
     Active Substance: SODIUM CHLORIDE
     Dates: start: 20201217, end: 20201218

REACTIONS (5)
  - Wheezing [None]
  - Hypoxia [None]
  - Tachycardia [None]
  - Pyrexia [None]
  - Tachypnoea [None]

NARRATIVE: CASE EVENT DATE: 20201218
